FAERS Safety Report 7373252 (Version 4)
Quarter: 2012Q4

REPORT INFORMATION
  Report Type: 
  Country: US (occurrence: US)
  Receive Date: 20100503
  Receipt Date: 20120925
  Transmission Date: 20130627
  Serious: Yes (Hospitalization)
  Sender: FDA-Public Use
  Company Number: US-BAYER-201020485NA

PATIENT
  Age: 42 Year
  Sex: Female
  Weight: 75.9 kg

DRUGS (12)
  1. YASMIN [Suspect]
     Indication: CONTRACEPTION
     Route: 048
     Dates: start: 20050717, end: 200709
  2. YASMIN [Suspect]
     Indication: ACNE
  3. YAZ [Suspect]
     Indication: CONTRACEPTION
     Route: 048
     Dates: start: 20061020, end: 200905
  4. YAZ [Suspect]
     Indication: ACNE
  5. PLAQUENIL [Concomitant]
     Indication: RHEUMATOID ARTHRITIS
     Dates: start: 200710, end: 200903
  6. PLAQUENIL [Concomitant]
     Indication: RHEUMATOID ARTHRITIS
     Dosage: 400 mg (Daily Dose), ,
  7. MOBIC [Concomitant]
     Indication: RHEUMATOID ARTHRITIS
     Dates: start: 2006, end: 2009
  8. PHENTERMINE [Concomitant]
     Indication: WEIGHT DECREASED
     Dosage: 37.5 mg (Daily Dose), QD,
     Dates: start: 2007, end: 2008
  9. PROTONIX [Concomitant]
     Indication: ABDOMINAL DISCOMFORT
     Dosage: 40 mg (Daily Dose), ,
     Dates: start: 20090417, end: 200910
  10. VICODIN [Concomitant]
  11. PLAVIX [Concomitant]
     Indication: MYOCARDIAL INFARCTION
     Dosage: 75 mg (Daily Dose), ,
  12. ESTRADIOL [Concomitant]
     Indication: SKIN DISORDER

REACTIONS (18)
  - Acute myocardial infarction [Unknown]
  - Abdominal tenderness [Unknown]
  - Back pain [Unknown]
  - Chest discomfort [Unknown]
  - Cholecystitis [Unknown]
  - Abdominal pain [Unknown]
  - Constipation [Unknown]
  - Fatigue [Unknown]
  - Diarrhoea [Unknown]
  - Nausea [Unknown]
  - Murphy^s sign positive [Unknown]
  - Biliary colic [Unknown]
  - Abdominal pain upper [Unknown]
  - Cholelithiasis [Unknown]
  - Gastritis [Recovering/Resolving]
  - Abdominal discomfort [Recovering/Resolving]
  - Epigastric discomfort [Recovering/Resolving]
  - Abdominal distension [Recovering/Resolving]
